FAERS Safety Report 25082632 (Version 2)
Quarter: 2025Q1

REPORT INFORMATION
  Report Type: Report from Study
  Country: CA (occurrence: CA)
  Receive Date: 20250317
  Receipt Date: 20250318
  Transmission Date: 20250409
  Serious: Yes (Hospitalization, Other)
  Sender: REGENERON
  Company Number: CA-BAYER-2025A034060

PATIENT
  Sex: Male

DRUGS (1)
  1. EYLEA [Suspect]
     Active Substance: AFLIBERCEPT
     Indication: Retinal vein occlusion
     Route: 031
     Dates: start: 20241119

REACTIONS (4)
  - Cardiac operation [Not Recovered/Not Resolved]
  - Blindness [Unknown]
  - Visual impairment [Unknown]
  - Drug ineffective [Unknown]

NARRATIVE: CASE EVENT DATE: 20250313
